FAERS Safety Report 7511034-2 (Version None)
Quarter: 2011Q2

REPORT INFORMATION
  Report Type: 
  Country: None (occurrence: None)
  Receive Date: 20110531
  Receipt Date: 20110526
  Transmission Date: 20111010
  Serious: No
  Sender: FDA-Public Use
  Company Number: US-PFIZER INC-2011115456

PATIENT
  Sex: Female
  Weight: 86.621 kg

DRUGS (10)
  1. RANEXA [Concomitant]
     Dosage: 500 MG, 2X/DAY
  2. METFORMIN [Concomitant]
     Dosage: 500 MG, 2X/DAY
  3. ATENOLOL [Concomitant]
     Dosage: 80 MG, 2X/DAY
  4. ISOSORBIDE [Concomitant]
     Dosage: 30 MG, 2X/DAY
  5. AMLODIPINE [Concomitant]
     Dosage: 2 MG, DAILY
  6. HYDROCHLOROTHIAZIDE [Concomitant]
     Dosage: 25 MG, DAILY
  7. JANUVIA [Concomitant]
     Dosage: 100 MG, DAILY
  8. SIMVASTATIN [Concomitant]
     Dosage: 80 MG, DAILY
  9. CHANTIX [Suspect]
     Indication: SMOKING CESSATION THERAPY
     Dosage: UNK
     Route: 048
     Dates: start: 20110101
  10. CHANTIX [Suspect]
     Dosage: UNKNOWN DOSE TWO TIMES A DAY
     Route: 048
     Dates: start: 20110101

REACTIONS (2)
  - MALAISE [None]
  - VOMITING [None]
